FAERS Safety Report 8222572-1 (Version None)
Quarter: 2012Q1

REPORT INFORMATION
  Report Type: 
  Country: None (occurrence: None)
  Receive Date: 20120320
  Receipt Date: 20120319
  Transmission Date: 20120608
  Serious: Yes (Other)
  Sender: FDA-Public Use
  Company Number: US-JNJFOC-20100700657

PATIENT
  Sex: Female

DRUGS (4)
  1. CHILDREN'S BENADRYL ALLERGY [Suspect]
     Indication: PRURITUS
     Route: 048
     Dates: start: 20090101
  2. CHILDREN'S TYLENOL SUSPENSION [Suspect]
     Indication: PAIN
     Route: 048
     Dates: start: 20090101
  3. CHILDREN'S BENADRYL ALLERGY [Suspect]
     Route: 048
  4. CHILDREN'S TYLENOL SUSPENSION [Suspect]
     Route: 048

REACTIONS (3)
  - RESPIRATORY SYNCYTIAL VIRUS INFECTION [None]
  - PRODUCT QUALITY ISSUE [None]
  - PNEUMONIA [None]
